FAERS Safety Report 19237506 (Version 1)
Quarter: 2021Q2

REPORT INFORMATION
  Report Type: Spontaneous
  Country: US (occurrence: US)
  Receive Date: 20210510
  Receipt Date: 20210510
  Transmission Date: 20210717
  Serious: No
  Sender: FDA-Public Use
  Company Number: None

PATIENT
  Sex: Female

DRUGS (4)
  1. LYRICA [Concomitant]
     Active Substance: PREGABALIN
  2. METOPROLOL. [Concomitant]
     Active Substance: METOPROLOL
  3. LIDOCAINE. [Concomitant]
     Active Substance: LIDOCAINE
  4. IMATINIB MES 400 MG TAB [Suspect]
     Active Substance: IMATINIB
     Route: 048
     Dates: start: 20200130

REACTIONS (2)
  - Drug interaction [None]
  - Oesophageal pain [None]
